FAERS Safety Report 5259879-6 (Version None)
Quarter: 2007Q1

REPORT INFORMATION
  Report Type: 
  Country: None (occurrence: None)
  Receive Date: 20070306
  Receipt Date: 20070223
  Transmission Date: 20070707
  Serious: Yes (Hospitalization, Disabling)
  Sender: FDA-Public Use
  Company Number: 2007P1000123

PATIENT
  Age: 38 Year
  Sex: Male

DRUGS (3)
  1. BUSULFAN  (BUSULFAN ) [Suspect]
     Indication: STEM CELL TRANSPLANT
     Dosage: 3.2 MGKG; QD; IV
     Route: 042
     Dates: start: 20060919, end: 20060921
  2. CYTARABINE [Suspect]
     Indication: STEM CELL TRANSPLANT
     Dosage: 2000 MG; QD
     Dates: start: 20060922, end: 20060924
  3. MELPHALAN [Concomitant]

REACTIONS (3)
  - AMNESIA [None]
  - NEUROTOXICITY [None]
  - VITAMIN C DEFICIENCY [None]
